FAERS Safety Report 6219067-3 (Version None)
Quarter: 2009Q2

REPORT INFORMATION
  Report Type: 
  Country: None (occurrence: None)
  Receive Date: 20090608
  Receipt Date: 20090602
  Transmission Date: 20091009
  Serious: Yes (Other)
  Sender: FDA-Public Use
  Company Number: DE-JNJCH-2009013906

PATIENT
  Sex: Female
  Weight: 64 kg

DRUGS (1)
  1. REGAINE FRAUEN [Suspect]
     Indication: ALOPECIA
     Dosage: TEXT:UNSPECIFIED ONCE A DAY
     Route: 061
     Dates: start: 20081201, end: 20090201

REACTIONS (5)
  - ERYTHEMA OF EYELID [None]
  - EYELID OEDEMA [None]
  - HYPERSENSITIVITY [None]
  - SKIN DISORDER [None]
  - SKIN EXFOLIATION [None]
